FAERS Safety Report 9316519 (Version 2)
Quarter: 2014Q2

REPORT INFORMATION
  Report Type: Spontaneous
  Country: US (occurrence: US)
  Receive Date: 20130530
  Receipt Date: 20140514
  Transmission Date: 20141212
  Serious: No
  Sender: FDA-Public Use
  Company Number: US-PFIZER INC-2013163519

PATIENT
  Age: 64 Year
  Sex: Female
  Weight: 47.17 kg

DRUGS (3)
  1. LYRICA [Suspect]
     Indication: FIBROMYALGIA
     Dosage: 75 MG, 2X/DAY
     Route: 048
     Dates: start: 2010, end: 201305
  2. SENOKOT [Concomitant]
     Indication: CONSTIPATION
     Dosage: UNK
  3. HYDROCODONE [Concomitant]
     Dosage: UNK

REACTIONS (5)
  - Pain [Recovered/Resolved]
  - Insomnia [Not Recovered/Not Resolved]
  - Malaise [Recovered/Resolved]
  - Nausea [Recovered/Resolved]
  - Influenza [Recovered/Resolved]
